FAERS Safety Report 10081020 (Version 2)
Quarter: 2014Q3

REPORT INFORMATION
  Report Type: Spontaneous
  Country: US (occurrence: US)
  Receive Date: 20140416
  Receipt Date: 20140701
  Transmission Date: 20150326
  Serious: No
  Sender: FDA-Public Use
  Company Number: US-PFIZER INC-2014102106

PATIENT
  Age: 84 Year
  Sex: Female
  Weight: 56.69 kg

DRUGS (1)
  1. XALATAN [Suspect]
     Active Substance: LATANOPROST
     Indication: GLAUCOMA
     Dosage: 1 GTT, DAILY (IN EACH EYE AT NIGHT)
     Route: 047
     Dates: start: 2007, end: 201304

REACTIONS (2)
  - Cardiac disorder [Unknown]
  - Eye disorder [Unknown]
